FAERS Safety Report 20770808 (Version 1)
Quarter: 2022Q2

REPORT INFORMATION
  Report Type: Spontaneous
  Country: US (occurrence: US)
  Receive Date: 20220429
  Receipt Date: 20220429
  Transmission Date: 20220720
  Serious: Yes (Hospitalization)
  Sender: FDA-Public Use
  Company Number: US-009507513-2204USA009037

PATIENT
  Age: 68 Year
  Sex: Male

DRUGS (1)
  1. KEYTRUDA [Suspect]
     Active Substance: PEMBROLIZUMAB
     Indication: Head and neck cancer
     Dosage: UNK
     Route: 042

REACTIONS (7)
  - Muscular weakness [Unknown]
  - Dysarthria [Recovering/Resolving]
  - Gait inability [Recovering/Resolving]
  - Gait disturbance [Recovering/Resolving]
  - Adverse event [Unknown]
  - Dizziness [Unknown]
  - Nausea [Unknown]
